FAERS Safety Report 5251428-1 (Version None)
Quarter: 2007Q1

REPORT INFORMATION
  Report Type: 
  Country: None (occurrence: None)
  Receive Date: 20070228
  Receipt Date: 20060508
  Transmission Date: 20070707
  Serious: No
  Sender: FDA-Public Use
  Company Number: US-GLAXOSMITHKLINE-A0604704A

PATIENT
  Age: 20 Year
  Sex: Female

DRUGS (3)
  1. LAMICTAL [Suspect]
     Indication: EPILEPSY
     Dosage: 200MG TWICE PER DAY
     Route: 048
  2. PRENATAL VITAMINS [Concomitant]
  3. MOTRIN [Concomitant]

REACTIONS (4)
  - DRUG EXPOSURE VIA BREAST MILK [None]
  - INDUCED LABOUR [None]
  - NORMAL DELIVERY [None]
  - SUPPRESSED LACTATION [None]
